FAERS Safety Report 8343968-3 (Version None)
Quarter: 2012Q1

REPORT INFORMATION
  Report Type: 
  Country: None (occurrence: None)
  Receive Date: 20120330
  Receipt Date: 20110615
  Transmission Date: 20120608
  Serious: Yes (Hospitalization)
  Sender: FDA-Public Use
  Company Number: PHHY2011US38130

PATIENT
  Sex: Female

DRUGS (13)
  1. LEVOXYL [Concomitant]
  2. LOPRESSOR [Concomitant]
  3. DEPLIN (CALCIUM L-METHYLFOLATE) [Concomitant]
  4. VITAMIN B6 [Concomitant]
  5. EXELON [Suspect]
     Dosage: 9.5 MG, ONE PATCH DAILY
  6. WATER PILLS (AMMONIUM CHLORIDE, CAFFEINE) [Concomitant]
  7. ENBREL [Concomitant]
  8. VITAMIN D [Concomitant]
  9. METHOTREXATE [Concomitant]
  10. BENICAR [Concomitant]
  11. TORSEMIDE [Concomitant]
  12. POTASSIUM CHLORIDE [Concomitant]
  13. NAMENDA [Concomitant]

REACTIONS (3)
  - DRUG INEFFECTIVE [None]
  - DIARRHOEA [None]
  - GASTROINTESTINAL TRACT IRRITATION [None]
